FAERS Safety Report 9410217 (Version 1)
Quarter: 2013Q2

REPORT INFORMATION
  Report Type: Spontaneous
  Country: US (occurrence: None)
  Receive Date: 20130606
  Receipt Date: 20130606
  Transmission Date: 20140414
  Serious: Yes (Hospitalization, Other)
  Sender: FDA-Public Use
  Company Number: JPI-P-032335

PATIENT
  Age: 18 Year
  Sex: Female

DRUGS (2)
  1. XYREM (500 MILLIGRAM/MILLILITERS, SOLUTION) (SODIUM OXYBATE) [Suspect]
     Indication: PRODUCT USED FOR UNKNOWN INDICATION
     Dosage: 3 GM (1.5 GM,2 IN 1 D)
     Route: 048
  2. MODAFINIL (UNKNOWN) [Concomitant]

REACTIONS (17)
  - Suicidal ideation [None]
  - Cardiac arrest [None]
  - Renal failure acute [None]
  - Necrosis [None]
  - Cerebral infarction [None]
  - Mood altered [None]
  - Psychotic disorder [None]
  - Sluggishness [None]
  - Incoherent [None]
  - Feeling abnormal [None]
  - Paranoia [None]
  - Hallucination, auditory [None]
  - Derealisation [None]
  - Agitation [None]
  - Heart injury [None]
  - Traumatic lung injury [None]
  - Intentional self-injury [None]
